FAERS Safety Report 9375900 (Version 3)
Quarter: 2014Q2

REPORT INFORMATION
  Report Type: Spontaneous
  Country: US (occurrence: US)
  Receive Date: 20130628
  Receipt Date: 20140404
  Transmission Date: 20141212
  Serious: Yes (Death, Hospitalization, Other)
  Sender: FDA-Public Use
  Company Number: US-B.I. PHARMACEUTICALS,INC./RIDGEFIELD-2013-BI-18240BP

PATIENT
  Age: 71 Year
  Sex: Female

DRUGS (3)
  1. PRADAXA [Suspect]
     Indication: ANTICOAGULANT THERAPY
     Route: 065
     Dates: start: 20101201, end: 20110621
  2. METFORMIN [Concomitant]
     Route: 065
     Dates: start: 2009, end: 2011
  3. LANTUS [Concomitant]
     Route: 065
     Dates: start: 2009, end: 2011

REACTIONS (12)
  - Gastrointestinal haemorrhage [Fatal]
  - Renal failure [Fatal]
  - Anaemia [Fatal]
  - Peripheral vascular disorder [Fatal]
  - Hypertension [Fatal]
  - Haemorrhagic stroke [Unknown]
  - Cerebral haemorrhage [Unknown]
  - Respiratory failure [Unknown]
  - Myocardial infarction [Unknown]
  - Ischaemic stroke [Unknown]
  - Renal haemorrhage [Unknown]
  - Vaginal haemorrhage [Unknown]
